FAERS Safety Report 11381710 (Version 5)
Quarter: 2015Q4

REPORT INFORMATION
  Report Type: Report from Study
  Country: CH (occurrence: CH)
  Receive Date: 20150814
  Receipt Date: 20151029
  Transmission Date: 20160304
  Serious: Yes (Other)
  Sender: FDA-Public Use
  Company Number: CH-BAXALTA-2015BLT001048

PATIENT
  Sex: Male
  Weight: 68 kg

DRUGS (2)
  1. FEIBA [Suspect]
     Active Substance: ANTI-INHIBITOR COAGULANT COMPLEX
     Indication: HAEMORRHAGE PROPHYLAXIS
     Dosage: 3000 UNK, EVERY 3 WK
     Route: 065
  2. FEIBA [Suspect]
     Active Substance: ANTI-INHIBITOR COAGULANT COMPLEX
     Indication: FACTOR VIII DEFICIENCY
     Dosage: 3000 IU, 3X A WEEK
     Route: 065

REACTIONS (2)
  - Hepatic pain [Recovering/Resolving]
  - Hepatocellular injury [Unknown]

NARRATIVE: CASE EVENT DATE: 2013
